FAERS Safety Report 16357110 (Version 1)
Quarter: 2019Q2

REPORT INFORMATION
  Report Type: Spontaneous
  Country: NO (occurrence: NO)
  Receive Date: 20190527
  Receipt Date: 20190527
  Transmission Date: 20190711
  Serious: Yes (Hospitalization, Other)
  Sender: FDA-Public Use
  Company Number: NO-SA-2019SA137078

PATIENT
  Age: 47 Year
  Sex: Male
  Weight: 88 kg

DRUGS (2)
  1. KLEXANE [Suspect]
     Active Substance: ENOXAPARIN
     Dosage: UNK
  2. KLEXANE [Suspect]
     Active Substance: ENOXAPARIN
     Dosage: 0.8 MG, BID
     Route: 058
     Dates: start: 20190118, end: 20190124

REACTIONS (2)
  - Administration site infection [Recovered/Resolved]
  - Abscess [Recovering/Resolving]

NARRATIVE: CASE EVENT DATE: 20190118
